FAERS Safety Report 5078133-9 (Version None)
Quarter: 2006Q3

REPORT INFORMATION
  Report Type: 
  Country: None (occurrence: None)
  Receive Date: 20060811
  Receipt Date: 20060802
  Transmission Date: 20061208
  Serious: Yes (Hospitalization)
  Sender: FDA-Public Use
  Company Number: US-ABBOTT-06P-163-0339521-00

PATIENT

DRUGS (2)
  1. RITONAVIR CAPSULES [Suspect]
     Indication: DRUG USE FOR UNKNOWN INDICATION
  2. APTIVUS [Suspect]
     Indication: DRUG USE FOR UNKNOWN INDICATION

REACTIONS (2)
  - KAPOSI'S SARCOMA [None]
  - PULMONARY EMBOLISM [None]
